FAERS Safety Report 26110803 (Version 1)
Quarter: 2025Q4

REPORT INFORMATION
  Report Type: Spontaneous
  Country: CN (occurrence: CN)
  Receive Date: 20251202
  Receipt Date: 20251202
  Transmission Date: 20260118
  Serious: Yes (Hospitalization)
  Sender: GE HEALTHCARE
  Company Number: CN-GE HEALTHCARE-2025CSU016620

PATIENT
  Age: 54 Year
  Sex: Male

DRUGS (1)
  1. OMNIPAQUE [Suspect]
     Active Substance: IOHEXOL
     Indication: Diagnostic procedure
     Dosage: 60 ML, TOTAL
     Route: 042
     Dates: start: 20251111

REACTIONS (6)
  - Dehydration [Recovering/Resolving]
  - Anaphylactoid reaction [Recovering/Resolving]
  - Loss of consciousness [Recovering/Resolving]
  - Shock [Recovering/Resolving]
  - Rash [Recovering/Resolving]
  - Hyperhidrosis [Recovering/Resolving]

NARRATIVE: CASE EVENT DATE: 20251111
